FAERS Safety Report 6196230-1 (Version None)
Quarter: 2009Q2

REPORT INFORMATION
  Report Type: 
  Country: None (occurrence: None)
  Receive Date: 20090520
  Receipt Date: 20090512
  Transmission Date: 20091009
  Serious: Yes (Other)
  Sender: FDA-Public Use
  Company Number: PHHY2009CA18830

PATIENT
  Age: 54 Year
  Sex: Female

DRUGS (4)
  1. FEMARA [Suspect]
     Indication: BREAST CANCER
     Dosage: 2.5 MG DAILY
     Route: 048
     Dates: start: 20090127, end: 20090201
  2. LUTEIN [Concomitant]
  3. MULTI-VITAMINS [Concomitant]
  4. COD-LIVER OIL [Concomitant]

REACTIONS (5)
  - ARTHRALGIA [None]
  - DYSPAREUNIA [None]
  - DYSPHAGIA [None]
  - PAIN [None]
  - PAIN IN EXTREMITY [None]
